FAERS Safety Report 21980695 (Version 2)
Quarter: 2023Q2

REPORT INFORMATION
  Report Type: Report from Study
  Country: CO (occurrence: CO)
  Receive Date: 20230211
  Receipt Date: 20230513
  Transmission Date: 20230721
  Serious: Yes (Other)
  Sender: FDA-Public Use
  Company Number: CO-002147023-PHHY2015CO044590

PATIENT
  Age: 42 Year
  Sex: Male
  Weight: 79 kg

DRUGS (3)
  1. TASIGNA [Suspect]
     Active Substance: NILOTINIB
     Indication: Chronic myeloid leukaemia
     Dosage: 200 MG, QID
     Route: 065
     Dates: start: 20160203, end: 20160208
  2. TASIGNA [Suspect]
     Active Substance: NILOTINIB
     Dosage: 800 MG (2 CAPSULES OF 200 MG EVERY 12 HOURS (400MG AT 10, AM, 400MG AT 10 PM))
     Route: 048
  3. TASIGNA [Suspect]
     Active Substance: NILOTINIB
     Dosage: UNK (BY MOUTH)
     Route: 048

REACTIONS (14)
  - Alcohol poisoning [Unknown]
  - Pulse abnormal [Unknown]
  - Investigation abnormal [Unknown]
  - Blood glucose abnormal [Unknown]
  - Myalgia [Unknown]
  - Cardiac disorder [Unknown]
  - Dizziness [Unknown]
  - Vision blurred [Unknown]
  - Visual impairment [Unknown]
  - Illness [Unknown]
  - Abdominal pain [Unknown]
  - Cytogenetic analysis abnormal [Unknown]
  - Fatigue [Unknown]
  - Inappropriate schedule of product administration [Unknown]

NARRATIVE: CASE EVENT DATE: 20161222
